FAERS Safety Report 17047969 (Version 1)
Quarter: 2019Q4

REPORT INFORMATION
  Report Type: Report from Study
  Country: US (occurrence: US)
  Receive Date: 20191119
  Receipt Date: 20191119
  Transmission Date: 20200122
  Serious: Yes (Other)
  Sender: FDA-Public Use
  Company Number: US-EMD SERONO-9122941

PATIENT
  Sex: Female

DRUGS (2)
  1. MAVENCLAD [Suspect]
     Active Substance: CLADRIBINE
     Dosage: YEAR ONE MONTH TWO THERAPY: THE PATIENT WOULD FINISH HER LAST DOSE TOMORROW (AS OF 11 NOV 2019).
     Route: 048
     Dates: start: 20191108
  2. MAVENCLAD [Suspect]
     Active Substance: CLADRIBINE
     Indication: MULTIPLE SCLEROSIS
     Dosage: YEAR ONE MONTH ONE THERAPY: THE PATIENT FINISHED TAKING LAST DOSE ON 16 OCT 2019
     Route: 048
     Dates: start: 20191012, end: 20191016

REACTIONS (1)
  - Myocardial ischaemia [Unknown]
